FAERS Safety Report 21132687 (Version 1)
Quarter: 2022Q3

REPORT INFORMATION
  Report Type: Spontaneous
  Country: US (occurrence: US)
  Receive Date: 20220726
  Receipt Date: 20220726
  Transmission Date: 20221027
  Serious: No
  Sender: FDA-Public Use
  Company Number: US-PFIZER INC-202200996622

PATIENT
  Age: 82 Year
  Sex: Male
  Weight: 68.04 kg

DRUGS (1)
  1. PAXLOVID [Suspect]
     Active Substance: NIRMATRELVIR\RITONAVIR
     Indication: COVID-19 treatment
     Dosage: UNK UNK, 1X/DAY(TOOK ONCE A DAY AT NIGHT 5 TABLETS)
     Dates: start: 20220617, end: 20220621

REACTIONS (12)
  - Dyspnoea [Unknown]
  - Dysphagia [Unknown]
  - Dysphonia [Unknown]
  - Ageusia [Unknown]
  - Dry mouth [Unknown]
  - Lip swelling [Unknown]
  - Mouth swelling [Unknown]
  - Dysgeusia [Unknown]
  - COVID-19 [Unknown]
  - Disease recurrence [Unknown]
  - Incorrect dosage administered [Unknown]
  - Skin odour abnormal [Unknown]
